FAERS Safety Report 8827681 (Version 1)
Quarter: 2012Q4

REPORT INFORMATION
  Report Type: 
  Country: US (occurrence: US)
  Receive Date: 20121008
  Receipt Date: 20121008
  Transmission Date: 20130627
  Serious: No
  Sender: FDA-Public Use
  Company Number: US-PFIZER INC-2012245660

PATIENT
  Sex: Female

DRUGS (3)
  1. NEURONTIN [Suspect]
     Indication: INSOMNIA
     Dosage: 100 mg, UNK
     Route: 048
     Dates: start: 20120907
  2. NEURONTIN [Suspect]
     Dosage: UNK
     Dates: start: 2012
  3. ZOFRAN [Concomitant]
     Indication: NAUSEA
     Dosage: UNK

REACTIONS (2)
  - Off label use [Unknown]
  - Somnolence [Unknown]
